FAERS Safety Report 20111162 (Version 1)
Quarter: 2021Q4

REPORT INFORMATION
  Report Type: Spontaneous
  Country: US (occurrence: US)
  Receive Date: 20211125
  Receipt Date: 20211125
  Transmission Date: 20220304
  Serious: Yes (Other)
  Sender: FDA-Public Use
  Company Number: US-APOTEX-2021AP045666

PATIENT

DRUGS (1)
  1. ENOXAPARIN [Suspect]
     Active Substance: ENOXAPARIN
     Indication: Embolism venous
     Dosage: UNK
     Route: 065

REACTIONS (1)
  - Haemorrhage [Unknown]
